FAERS Safety Report 15298546 (Version 1)
Quarter: 2018Q3

REPORT INFORMATION
  Report Type: Spontaneous
  Country: JP (occurrence: JP)
  Receive Date: 20180820
  Receipt Date: 20180820
  Transmission Date: 20181010
  Serious: Yes (Death, Life-Threatening, Hospitalization, Disabling)
  Sender: FDA-Public Use
  Company Number: JP-MUNDIPHARMA DS AND PHARMACOVIGILANCE-GBR-2015-0026534

PATIENT
  Age: 84 Year
  Sex: Male

DRUGS (1)
  1. OXYCODONE HCL INJECTABLE [Suspect]
     Active Substance: OXYCODONE HYDROCHLORIDE
     Indication: CANCER PAIN
     Dosage: 20 MG, DAILY
     Route: 042
     Dates: start: 20150311, end: 20150313

REACTIONS (2)
  - Malignant neoplasm progression [Fatal]
  - Coma [Fatal]

NARRATIVE: CASE EVENT DATE: 20150313
